FAERS Safety Report 12834964 (Version 1)
Quarter: 2016Q4

REPORT INFORMATION
  Report Type: Report from Study
  Country: BR (occurrence: BR)
  Receive Date: 20161010
  Receipt Date: 20161010
  Transmission Date: 20170207
  Serious: Yes (Death, Hospitalization)
  Sender: FDA-Public Use
  Company Number: BR-B.I. PHARMACEUTICALS,INC./RIDGEFIELD-2015-BI-24630BI

PATIENT
  Age: 74 Year
  Sex: Male
  Weight: 67.3 kg

DRUGS (8)
  1. RISPERIDONE. [Concomitant]
     Active Substance: RISPERIDONE
     Indication: DEPRESSION
     Dosage: DOSE PER APPLICATION AND DAILY DOSE: 1
     Route: 048
     Dates: start: 20150115
  2. OMEPRAZOL [Concomitant]
     Active Substance: OMEPRAZOLE
     Indication: GASTRITIS PROPHYLAXIS
     Route: 048
     Dates: start: 20150115
  3. BLINDED BI 1356 [Suspect]
     Active Substance: LINAGLIPTIN
     Indication: TYPE 2 DIABETES MELLITUS
     Route: 048
     Dates: start: 20120327, end: 20150415
  4. ENALAPRIL [Concomitant]
     Active Substance: ENALAPRIL
     Indication: DIABETIC NEPHROPATHY
     Route: 048
     Dates: start: 20150115
  5. METFORMIN [Concomitant]
     Active Substance: METFORMIN HYDROCHLORIDE
     Indication: DIABETES MELLITUS
     Route: 048
     Dates: start: 20150619
  6. CLONAZEPAM. [Concomitant]
     Active Substance: CLONAZEPAM
     Indication: INSOMNIA
     Dosage: DOSE PER APPLICATION AND DAILY DOSE: 3
     Route: 048
     Dates: start: 20140602
  7. GLIBENCLAMIDE [Concomitant]
     Active Substance: GLYBURIDE
     Indication: DIABETES MELLITUS
     Route: 048
     Dates: start: 20150619
  8. VALPROIC ACID. [Concomitant]
     Active Substance: VALPROIC ACID
     Indication: DEPRESSION
     Route: 048
     Dates: start: 20150115

REACTIONS (4)
  - Pneumonia [Fatal]
  - Lung infection [Recovered/Resolved]
  - Pneumonia [Recovered/Resolved]
  - Dementia Alzheimer^s type [Fatal]

NARRATIVE: CASE EVENT DATE: 20150212
